FAERS Safety Report 6413226-2 (Version None)
Quarter: 2009Q4

REPORT INFORMATION
  Report Type: 
  Country: None (occurrence: None)
  Receive Date: 20091026
  Receipt Date: 20091016
  Transmission Date: 20100525
  Serious: Yes (Death, Hospitalization)
  Sender: FDA-Public Use
  Company Number: US-CELGENEUS-163-21880-09081711

PATIENT
  Sex: Male
  Weight: 58 kg

DRUGS (23)
  1. REVLIMID [Suspect]
     Indication: AMYLOIDOSIS
     Route: 048
     Dates: start: 20080828, end: 20090810
  2. DEXAMETHASONE [Suspect]
     Indication: AMYLOIDOSIS
     Route: 065
     Dates: start: 20080828, end: 20090810
  3. CYTOXAN [Suspect]
     Indication: AMYLOIDOSIS
     Route: 065
     Dates: start: 20080828, end: 20090810
  4. AVASTIN [Suspect]
     Indication: PLEURAL EFFUSION
     Route: 065
  5. RED BLOOD CELLS [Concomitant]
     Dosage: 2 UNITS
     Route: 051
     Dates: start: 20090801
  6. ACYCLOVIR [Concomitant]
     Indication: DRUG USE FOR UNKNOWN INDICATION
     Route: 065
     Dates: end: 20090811
  7. BACTRIM [Concomitant]
     Indication: DRUG USE FOR UNKNOWN INDICATION
     Route: 065
     Dates: end: 20090811
  8. ALDACTONE [Concomitant]
     Indication: DRUG USE FOR UNKNOWN INDICATION
     Route: 065
  9. LASIX [Concomitant]
     Indication: DRUG USE FOR UNKNOWN INDICATION
     Route: 065
  10. AMBIEN [Concomitant]
     Indication: DRUG USE FOR UNKNOWN INDICATION
     Route: 048
  11. ASPIRIN [Concomitant]
     Indication: DRUG USE FOR UNKNOWN INDICATION
     Route: 048
  12. COLACE [Concomitant]
     Indication: DRUG USE FOR UNKNOWN INDICATION
     Route: 048
  13. CRESTOR [Concomitant]
     Indication: DRUG USE FOR UNKNOWN INDICATION
     Route: 048
  14. MULTI-VITAMIN [Concomitant]
     Indication: DRUG USE FOR UNKNOWN INDICATION
     Route: 048
  15. ZETIA [Concomitant]
     Indication: DRUG USE FOR UNKNOWN INDICATION
     Route: 048
  16. XOPENEX HFA [Concomitant]
     Route: 055
  17. NITROGLYCERIN [Concomitant]
     Indication: CHEST PAIN
     Route: 060
  18. DOBUTAMINE HCL [Concomitant]
     Indication: DRUG USE FOR UNKNOWN INDICATION
     Route: 041
     Dates: start: 20090801
  19. PLATELETS [Concomitant]
     Indication: THROMBOCYTOPENIA
     Route: 051
     Dates: start: 20090801, end: 20090801
  20. NEUPOGEN [Concomitant]
     Route: 065
     Dates: start: 20090801
  21. NEUPOGEN [Concomitant]
     Indication: NEUTROPHIL COUNT DECREASED
  22. ZOSYN [Concomitant]
     Route: 051
     Dates: start: 20090814
  23. NEO-SYNEPHRINOL [Concomitant]
     Indication: BLOOD PRESSURE FLUCTUATION
     Route: 041
     Dates: start: 20090814

REACTIONS (10)
  - CANDIDA SEPSIS [None]
  - DEHYDRATION [None]
  - HYPOTENSION [None]
  - MULTI-ORGAN FAILURE [None]
  - NAUSEA [None]
  - PANCYTOPENIA [None]
  - PLEURAL EFFUSION [None]
  - PULMONARY OEDEMA [None]
  - SMALL INTESTINAL OBSTRUCTION [None]
  - VOMITING [None]
